FAERS Safety Report 20704311 (Version 1)
Quarter: 2022Q2

REPORT INFORMATION
  Report Type: Spontaneous
  Country: CH (occurrence: CH)
  Receive Date: 20220413
  Receipt Date: 20220413
  Transmission Date: 20220721
  Serious: Yes (Other)
  Sender: FDA-Public Use
  Company Number: None

PATIENT
  Sex: Female
  Weight: 62 kg

DRUGS (4)
  1. MABTHERA [Suspect]
     Active Substance: RITUXIMAB
     Indication: Product used for unknown indication
     Dosage: THE 54-YEAR-OLD PATIENT (BODY WEIGHT: 62 KG, HEIGHT: 166 CM) WAS HOSPITALIZED BETWEEN FEBRUARY 13..
     Route: 065
     Dates: start: 20180213, end: 20190118
  2. PREDNISONE [Concomitant]
     Active Substance: PREDNISONE
     Dosage: PREDNISON 2.5 MG BIS 10 MG, ORAL
     Route: 048
  3. ESOMEPRAZOLE [Concomitant]
     Active Substance: ESOMEPRAZOLE
  4. GINGO BILOBA [Concomitant]

REACTIONS (1)
  - Cerebellar haemorrhage [Unknown]
